FAERS Safety Report 17181930 (Version 1)
Quarter: 2019Q4

REPORT INFORMATION
  Report Type: Report from Study
  Country: BE (occurrence: BE)
  Receive Date: 20191220
  Receipt Date: 20191220
  Transmission Date: 20200122
  Serious: Yes (Other)
  Sender: FDA-Public Use
  Company Number: BE-BEH-2019110798

PATIENT
  Age: 43 Year
  Sex: Male

DRUGS (2)
  1. HIZENTRA [Suspect]
     Active Substance: HUMAN IMMUNOGLOBULIN G
     Indication: PRODUCT USED FOR UNKNOWN INDICATION
     Dosage: 8 GRAM (40 MILLILITER), QW
     Route: 058
     Dates: start: 20190430
  2. HIZENTRA [Suspect]
     Active Substance: HUMAN IMMUNOGLOBULIN G
     Dosage: 8 GRAM, QW
     Route: 058
     Dates: start: 201910

REACTIONS (3)
  - Autoimmune thyroiditis [Unknown]
  - Musculoskeletal pain [Unknown]
  - Chills [Unknown]

NARRATIVE: CASE EVENT DATE: 201910
